FAERS Safety Report 21811696 (Version 1)
Quarter: 2022Q4

REPORT INFORMATION
  Report Type: Spontaneous
  Country: US (occurrence: None)
  Receive Date: 20221230
  Receipt Date: 20221230
  Transmission Date: 20230112
  Serious: No
  Sender: FDA-Public Use
  Company Number: None

PATIENT
  Age: 78 Year
  Sex: Male
  Weight: 84.91 kg

DRUGS (20)
  1. ABIRATERONE [Suspect]
     Active Substance: ABIRATERONE
     Indication: Prostate cancer
     Dosage: FREQUENCY : DAILY;?
     Route: 048
  2. ALLEGRA ALLERGY [Concomitant]
     Active Substance: FEXOFENADINE HYDROCHLORIDE
  3. AMITRIPTYLINE [Concomitant]
     Active Substance: AMITRIPTYLINE
  4. AMLODIPINE [Concomitant]
     Active Substance: AMLODIPINE BESYLATE
  5. ASPERCREME EXTERNAL CREAM [Concomitant]
  6. ATORVASTATIN [Concomitant]
     Active Substance: ATORVASTATIN
  7. BLINK TEARS [Concomitant]
     Active Substance: POLYETHYLENE GLYCOL 400
  8. ESOMEPRAZOLE [Concomitant]
     Active Substance: ESOMEPRAZOLE
  9. FLUTICASONE [Concomitant]
     Active Substance: FLUTICASONE
  10. FOLIC ACID [Concomitant]
     Active Substance: FOLIC ACID
  11. MULTIVITAMIN W/MINERAL [Concomitant]
  12. PEPTO-BISMOL [Concomitant]
     Active Substance: BISMUTH SUBSALICYLATE
  13. PREDNISONE [Concomitant]
     Active Substance: PREDNISONE
  14. FISH OIL [Concomitant]
     Active Substance: FISH OIL
  15. ROPINIROLE [Concomitant]
     Active Substance: ROPINIROLE
  16. SINGULAIR [Concomitant]
     Active Substance: MONTELUKAST SODIUM
  17. TRAMADOL [Concomitant]
     Active Substance: TRAMADOL
  18. TRELEGY ELLIPTA [Concomitant]
     Active Substance: FLUTICASONE FUROATE\UMECLIDINIUM BROMIDE\VILANTEROL TRIFENATATE
  19. TYLENOL [Concomitant]
     Active Substance: ACETAMINOPHEN
  20. VISINE A [Concomitant]
     Active Substance: NAPHAZOLINE HYDROCHLORIDE\PHENIRAMINE MALEATE

REACTIONS (2)
  - Prostatic specific antigen increased [None]
  - Prostate cancer [None]
